FAERS Safety Report 4558584-9 (Version None)
Quarter: 2005Q1

REPORT INFORMATION
  Report Type: 
  Country: None (occurrence: None)
  Receive Date: 20050121
  Receipt Date: 20041110
  Transmission Date: 20050727
  Serious: Yes (Hospitalization)
  Sender: FDA-Public Use
  Company Number: DE-ROCHE-386090

PATIENT
  Age: 43 Year
  Sex: Female
  Weight: 57 kg

DRUGS (5)
  1. CAPECITABINE [Suspect]
     Indication: BREAST CANCER
     Route: 048
     Dates: start: 20040415, end: 20041019
  2. ZOMETA [Concomitant]
     Route: 042
     Dates: start: 20030415
  3. MORPHINE SULFATE [Concomitant]
     Indication: PAIN
     Route: 048
     Dates: start: 20040115
  4. MAGNESIUM [Concomitant]
     Route: 048
     Dates: start: 20040115
  5. CALCIUM GLUCONATE [Concomitant]
     Route: 048
     Dates: start: 20040415

REACTIONS (3)
  - ARTERIAL OCCLUSIVE DISEASE [None]
  - FEMORAL ARTERY OCCLUSION [None]
  - PERIPHERAL ISCHAEMIA [None]
